FAERS Safety Report 16965132 (Version 1)
Quarter: 2019Q4

REPORT INFORMATION
  Report Type: Spontaneous
  Country: US (occurrence: US)
  Receive Date: 20191028
  Receipt Date: 20191028
  Transmission Date: 20200122
  Serious: No
  Sender: FDA-Public Use
  Company Number: US-MYLANLABS-2019M1101029

PATIENT
  Sex: Male

DRUGS (1)
  1. EPIPEN JR [Suspect]
     Active Substance: EPINEPHRINE
     Indication: RASH
     Dosage: UNK
     Dates: start: 20191022, end: 20191022

REACTIONS (1)
  - Accidental exposure to product by child [Not Recovered/Not Resolved]

NARRATIVE: CASE EVENT DATE: 20191022
